FAERS Safety Report 18802386 (Version 1)
Quarter: 2021Q1

REPORT INFORMATION
  Report Type: Spontaneous
  Country: US (occurrence: US)
  Receive Date: 20210129
  Receipt Date: 20210129
  Transmission Date: 20210419
  Serious: No
  Sender: FDA-Public Use
  Company Number: US-SPROUT PHARMACEUTICALS, INC.-2019SP000062

PATIENT
  Age: 45 Year
  Sex: Female
  Weight: 63.56 kg

DRUGS (7)
  1. SINGULAIR [Concomitant]
     Active Substance: MONTELUKAST SODIUM
     Indication: HYPERSENSITIVITY
  2. SINGULAIR [Concomitant]
     Active Substance: MONTELUKAST SODIUM
     Indication: ASTHMA
     Dosage: 1 TABLET ONCE DAILY
     Route: 048
  3. ADDYI [Suspect]
     Active Substance: FLIBANSERIN
     Indication: HOT FLUSH
     Dosage: 100 MG, 1 TABLET BY MOUTH, ONCE DAILY AT NIGHT
     Route: 048
  4. ESTROGEN CREAM [Concomitant]
     Indication: HORMONE REPLACEMENT THERAPY
  5. ADDYI [Suspect]
     Active Substance: FLIBANSERIN
     Indication: LIBIDO DECREASED
  6. ADDYI [Suspect]
     Active Substance: FLIBANSERIN
     Indication: ASTHENIA
  7. TESTOSTERONE CREAM [Concomitant]
     Active Substance: TESTOSTERONE
     Indication: HORMONE REPLACEMENT THERAPY

REACTIONS (9)
  - Dizziness [Recovered/Resolved]
  - Alcohol use [Not Recovered/Not Resolved]
  - Product use in unapproved indication [Recovered/Resolved]
  - Drug ineffective for unapproved indication [Unknown]
  - Product dose omission issue [Recovered/Resolved]
  - Intentional product misuse [Recovered/Resolved]
  - Hypotension [Recovered/Resolved]
  - Therapeutic response unexpected [Unknown]
  - Nausea [Recovered/Resolved]

NARRATIVE: CASE EVENT DATE: 201810
